FAERS Safety Report 6445515-X (Version None)
Quarter: 2009Q4

REPORT INFORMATION
  Report Type: 
  Country: None (occurrence: None)
  Receive Date: 20091110
  Receipt Date: 20090824
  Transmission Date: 20100525
  Serious: No
  Sender: FDA-Public Use
  Company Number: 1000008409

PATIENT
  Sex: Female

DRUGS (6)
  1. SAVELLA (MILNACIPRAN HYDROCHLORIDE) [Suspect]
     Indication: FIBROMYALGIA
     Dosage: SEE IMAGE
     Route: 048
     Dates: start: 20090601, end: 20090601
  2. SAVELLA (MILNACIPRAN HYDROCHLORIDE) [Suspect]
     Indication: FIBROMYALGIA
     Dosage: SEE IMAGE
     Route: 048
     Dates: start: 20090601
  3. MELOXICAM [Concomitant]
  4. DIABETES MEDICATION (NOS) [Concomitant]
  5. BLOOD PRESSURE MEDICATION [Concomitant]
  6. LIPITOR [Concomitant]

REACTIONS (1)
  - HYPERHIDROSIS [None]
